FAERS Safety Report 9519674 (Version 1)
Quarter: 2013Q1

REPORT INFORMATION
  Report Type: Spontaneous
  Country: US (occurrence: None)
  Receive Date: 20130305
  Receipt Date: 20130305
  Transmission Date: 20140127
  Serious: Yes (Other)
  Sender: FDA-Public Use
  Company Number: 163-21880-12010268

PATIENT
  Age: 64 Year
  Sex: Female

DRUGS (9)
  1. REVLIMID [Suspect]
     Indication: MYELODYSPLASTIC SYNDROME
     Dosage: 10 MG, DAILY, PO
     Route: 048
     Dates: start: 201108, end: 20111031
  2. DEFERASIROX (DEFERASIROX) (UNKNOWN) [Concomitant]
  3. OMEPRAZOLE (OMEPRAZOLE) (UNKNOWN) [Concomitant]
  4. COLESTIPOL (COLESTIPOL) (UNKNOWN) [Concomitant]
  5. ASA (ACETYLSALICYLIC ACID) (UNKNOWN) [Concomitant]
  6. METFORMIN (METFORMIN) (UNKNOWN) [Concomitant]
  7. EZETIMIBE (EZETIMIBE) (UNKNOWN) [Concomitant]
  8. NIACIN (NICOTINIC ACID) (UNKNOWN) [Concomitant]
  9. ISOSORBIDE (MONONITRATE (ISOSORBIDE MONONITRATE) (UNKNOWN) [Concomitant]

REACTIONS (1)
  - Thrombocytopenia [None]
